FAERS Safety Report 10098845 (Version 1)
Quarter: 2014Q2

REPORT INFORMATION
  Report Type: Spontaneous
  Country: US (occurrence: None)
  Receive Date: 20140422
  Receipt Date: 20140422
  Transmission Date: 20141212
  Serious: Yes (Hospitalization)
  Sender: FDA-Public Use
  Company Number: None

PATIENT
  Age: 66 Year
  Sex: Female
  Weight: 73 kg

DRUGS (2)
  1. CLONIDINE HCL [Suspect]
     Indication: HYPERTENSION
     Dosage: T TABLET TWICE A DAY BY MOUTH
     Route: 048
     Dates: start: 20140401, end: 20140407
  2. CLONIDINE HCL [Suspect]
     Dosage: T TABLET TWICE A DAY BY MOUTH
     Route: 048
     Dates: start: 20140401, end: 20140407

REACTIONS (6)
  - Dehydration [None]
  - Diarrhoea [None]
  - Haemoptysis [None]
  - Urinary incontinence [None]
  - Tongue discolouration [None]
  - Blood pressure inadequately controlled [None]
